FAERS Safety Report 13065020 (Version 2)
Quarter: 2017Q4

REPORT INFORMATION
  Report Type: Spontaneous
  Country: GB (occurrence: US)
  Receive Date: 20161227
  Receipt Date: 20171129
  Transmission Date: 20180320
  Serious: No
  Sender: FDA-Public Use
  Company Number: GB-BIOGEN-2016BI00335131

PATIENT
  Sex: Female

DRUGS (2)
  1. AVONEX [Suspect]
     Active Substance: INTERFERON BETA-1A
     Indication: MULTIPLE SCLEROSIS
     Route: 030
     Dates: start: 20120622
  2. ILOPROST. [Concomitant]
     Active Substance: ILOPROST
     Indication: RAYNAUD^S PHENOMENON
     Route: 065

REACTIONS (2)
  - Headache [Unknown]
  - Malaise [Unknown]
